FAERS Safety Report 5621542-7 (Version None)
Quarter: 2008Q1

REPORT INFORMATION
  Report Type: 
  Country: None (occurrence: None)
  Receive Date: 20080211
  Receipt Date: 20080206
  Transmission Date: 20080703
  Serious: Yes (Hospitalization)
  Sender: FDA-Public Use
  Company Number: JP-BRISTOL-MYERS SQUIBB COMPANY-14066831

PATIENT
  Age: 66 Year
  Sex: Female

DRUGS (11)
  1. TAXOL [Suspect]
     Indication: BREAST CANCER
     Route: 041
     Dates: start: 20070202, end: 20080124
  2. ADALAT [Concomitant]
     Route: 048
     Dates: start: 20070119
  3. NU-LOTAN [Concomitant]
     Route: 048
     Dates: start: 20070203
  4. VANCOMIN [Concomitant]
     Route: 048
     Dates: start: 20070217
  5. OXYCONTIN [Concomitant]
     Route: 048
     Dates: start: 20070124
  6. LOXONIN [Concomitant]
     Route: 048
     Dates: start: 20070110
  7. MUCOSTA [Concomitant]
     Route: 048
     Dates: start: 20070119
  8. NAUZELIN [Concomitant]
     Route: 048
     Dates: start: 20070124
  9. MAGLAX [Concomitant]
     Route: 048
  10. OPSO [Concomitant]
     Route: 048
  11. HERCEPTIN [Concomitant]
     Route: 041
     Dates: start: 20070202, end: 20080124

REACTIONS (2)
  - CEREBRAL INFARCTION [None]
  - NEUROPATHY PERIPHERAL [None]
